FAERS Safety Report 4667151-8 (Version None)
Quarter: 2005Q2

REPORT INFORMATION
  Report Type: 
  Country: None (occurrence: None)
  Receive Date: 20050520
  Receipt Date: 20040615
  Transmission Date: 20051028
  Serious: Yes (Other)
  Sender: FDA-Public Use
  Company Number: PHEH2004US06622

PATIENT
  Age: 62 Year
  Sex: Female

DRUGS (7)
  1. ZOMETA [Suspect]
     Indication: BREAST CANCER METASTATIC
     Dosage: 4 MG EVERY 4 WEEKS
     Route: 042
     Dates: start: 20020618
  2. AMARYL [Concomitant]
  3. PRINZIDE [Concomitant]
  4. AROMASIN [Concomitant]
     Indication: BREAST CANCER METASTATIC
     Dosage: 25 MG, QD
     Route: 048
     Dates: start: 20010201
  5. XYLOCAINE [Concomitant]
     Indication: LOCAL ANAESTHESIA
     Dates: start: 20040223, end: 20040223
  6. XYLOCAINE [Concomitant]
     Dates: start: 20040322, end: 20040322
  7. CALCIUM FOLINATE [Concomitant]
     Dates: start: 19940101

REACTIONS (8)
  - ASEPTIC NECROSIS BONE [None]
  - BIOPSY [None]
  - BONE DEBRIDEMENT [None]
  - DENTAL CARIES [None]
  - IMPAIRED HEALING [None]
  - OSTEONECROSIS [None]
  - SEQUESTRECTOMY [None]
  - TOOTH EXTRACTION [None]
